FAERS Safety Report 17590768 (Version 1)
Quarter: 2020Q1

REPORT INFORMATION
  Report Type: Spontaneous
  Country: US (occurrence: US)
  Receive Date: 20200325
  Receipt Date: 20200325
  Transmission Date: 20200409
  Serious: Yes (Life-Threatening)
  Sender: FDA-Public Use
  Company Number: None

PATIENT
  Age: 54 Year
  Sex: Male
  Weight: 80.29 kg

DRUGS (1)
  1. OXYCODONE (OXYCODONE HCL 10MG TAB) [Suspect]
     Active Substance: OXYCODONE HYDROCHLORIDE
     Indication: SURGERY
     Dates: start: 20180717, end: 20180717

REACTIONS (6)
  - Anaphylactic reaction [None]
  - Angioedema [None]
  - Throat tightness [None]
  - Lip swelling [None]
  - Stridor [None]
  - Swollen tongue [None]

NARRATIVE: CASE EVENT DATE: 20180717
